FAERS Safety Report 21178489 (Version 1)
Quarter: 2022Q3

REPORT INFORMATION
  Report Type: Spontaneous
  Country: US (occurrence: None)
  Receive Date: 20220805
  Receipt Date: 20220805
  Transmission Date: 20221027
  Serious: Yes (Hospitalization)
  Sender: FDA-Public Use
  Company Number: None

PATIENT
  Age: 45 Year
  Sex: Female
  Weight: 54 kg

DRUGS (1)
  1. MAGNESIUM CITRATE [Suspect]
     Active Substance: MAGNESIUM CITRATE
     Indication: Colonoscopy
     Dosage: OTHER QUANTITY : 1 NONE;?
     Route: 048
     Dates: start: 20211220, end: 20211229

REACTIONS (2)
  - Infection [None]
  - Malaise [None]

NARRATIVE: CASE EVENT DATE: 20220727
